FAERS Safety Report 8294758 (Version 6)
Quarter: 2013Q2

REPORT INFORMATION
  Report Type: Report from Study
  Country: IL (occurrence: IL)
  Receive Date: 20111216
  Receipt Date: 20130430
  Transmission Date: 20140414
  Serious: Yes (Hospitalization)
  Sender: FDA-Public Use
  Company Number: IL-ROCHE-794072

PATIENT
  Age: 61 Year
  Sex: Female
  Weight: 81.2 kg

DRUGS (3)
  1. VEMURAFENIB [Suspect]
     Indication: METASTATIC MALIGNANT MELANOMA
     Dosage: LAST DOSE PRIOR TO SAE - 28 JULY 2011
     Route: 048
     Dates: start: 20110718, end: 20110729
  2. VEMURAFENIB [Suspect]
     Route: 048
  3. PRAMIN [Concomitant]

REACTIONS (1)
  - Anaemia [Not Recovered/Not Resolved]
